FAERS Safety Report 21185065 (Version 2)
Quarter: 2023Q1

REPORT INFORMATION
  Report Type: Spontaneous
  Country: CA (occurrence: CA)
  Receive Date: 20220808
  Receipt Date: 20230207
  Transmission Date: 20230418
  Serious: Yes (Hospitalization, Other)
  Sender: FDA-Public Use
  Company Number: CA-BAXTER-2022BAX016513

PATIENT
  Age: 48 Year
  Sex: Female
  Weight: 106 kg

DRUGS (136)
  1. CYCLOPHOSPHAMIDE [Suspect]
     Active Substance: CYCLOPHOSPHAMIDE
     Indication: Tardive dyskinesia
     Dosage: UNK
     Route: 065
  2. CYCLOPHOSPHAMIDE [Suspect]
     Active Substance: CYCLOPHOSPHAMIDE
     Indication: Breast cancer
     Dosage: 1360 MG, 1 EVERY 2 WEEKS
     Route: 042
  3. CYCLOPHOSPHAMIDE [Suspect]
     Active Substance: CYCLOPHOSPHAMIDE
     Dosage: 1360 MG
     Route: 042
  4. CYCLOPHOSPHAMIDE [Suspect]
     Active Substance: CYCLOPHOSPHAMIDE
     Dosage: 1360 MG, 1 EVERY 2 WEEKS
     Route: 042
  5. CYCLOPHOSPHAMIDE [Suspect]
     Active Substance: CYCLOPHOSPHAMIDE
     Dosage: UNK
     Route: 042
  6. CYCLOPHOSPHAMIDE [Suspect]
     Active Substance: CYCLOPHOSPHAMIDE
     Dosage: DOSAGE FORM: NOT SPECIFIED, 1360 MG, 1 EVERY 2 WEEKS
     Route: 042
  7. CYCLOPHOSPHAMIDE [Suspect]
     Active Substance: CYCLOPHOSPHAMIDE
     Dosage: 1360 MG, 1 EVERY 2 WEEKS
     Route: 042
  8. DOXORUBICIN [Suspect]
     Active Substance: DOXORUBICIN
     Indication: Breast cancer
     Dosage: DOSAGE FORM: INJECTION
     Route: 042
  9. DOXORUBICIN [Suspect]
     Active Substance: DOXORUBICIN
     Dosage: 136 MG, DOSAGE FORM: INJECTION
     Route: 042
  10. DOXORUBICIN [Suspect]
     Active Substance: DOXORUBICIN
     Dosage: 136 MG,1 EVERY 2 WEEKS, DOSAGE FORM: INJECTION
     Route: 042
  11. DOXORUBICIN [Suspect]
     Active Substance: DOXORUBICIN
     Dosage: 136 MG,1 EVERY 2 WEEKS, DOSAGE FORM: INJECTION
     Route: 042
  12. DOXORUBICIN [Suspect]
     Active Substance: DOXORUBICIN
     Dosage: DOSAGE FORM: SOLUTION INTRAVENOUS, 136.0 MILLIGRAM, 1 EVERY 2 WEEKS
     Route: 042
  13. ACETAMINOPHEN AND CODEINE [Suspect]
     Active Substance: ACETAMINOPHEN\CODEINE PHOSPHATE
     Indication: Tardive dyskinesia
     Dosage: 30 MG, 1 EVERY 1 DAY
     Route: 065
  14. ACETAMINOPHEN AND CODEINE [Suspect]
     Active Substance: ACETAMINOPHEN\CODEINE PHOSPHATE
     Dosage: 30 MG, 1 EVERY 4 HOURS (ELX,USP160 MG-8MG/5ML)
     Route: 065
  15. ACETAMINOPHEN AND CODEINE [Suspect]
     Active Substance: ACETAMINOPHEN\CODEINE PHOSPHATE
     Dosage: UNK
     Route: 065
  16. ACETAMINOPHEN AND CODEINE [Suspect]
     Active Substance: ACETAMINOPHEN\CODEINE PHOSPHATE
     Dosage: 30 MG, 1 EVERY 1 DAY
     Route: 065
  17. ACETAMINOPHEN AND CODEINE [Suspect]
     Active Substance: ACETAMINOPHEN\CODEINE PHOSPHATE
     Dosage: 30 MG, 1 EVERY 1 DAY
     Route: 065
  18. ACETAMINOPHEN AND CODEINE [Suspect]
     Active Substance: ACETAMINOPHEN\CODEINE PHOSPHATE
     Dosage: 30 MG, 1 EVERY 4 HOURS, (ELX,USP160 MG-8MG/5ML)
     Route: 065
  19. ACETAMINOPHEN AND CODEINE [Suspect]
     Active Substance: ACETAMINOPHEN\CODEINE PHOSPHATE
     Dosage: 30 MG, 1 EVERY 4 HOURS
     Route: 065
  20. ACETAMINOPHEN AND CODEINE [Suspect]
     Active Substance: ACETAMINOPHEN\CODEINE PHOSPHATE
     Dosage: DOSAGE FORM: ELIXIR, 30.0 MG, 1 EVERY 1 DAYS, (ELX,USP160 MG-8MG/5ML)
     Route: 065
  21. BETAMETHASONE [Suspect]
     Active Substance: BETAMETHASONE
     Indication: Tardive dyskinesia
     Dosage: 2 EVERY 1 DAY
     Route: 065
  22. BETAMETHASONE [Suspect]
     Active Substance: BETAMETHASONE
     Dosage: UNK
     Route: 048
  23. BETAMETHASONE [Suspect]
     Active Substance: BETAMETHASONE
     Dosage: 1 EVERY 12 HOURS
     Route: 048
  24. BETAMETHASONE [Suspect]
     Active Substance: BETAMETHASONE
     Dosage: 2 EVERY 1 DAY
     Route: 065
  25. DEXAMETHASONE [Suspect]
     Active Substance: DEXAMETHASONE
     Indication: Supportive care
     Dosage: 20 MG, 1 EVERY 1 DAYS
     Route: 048
  26. DEXAMETHASONE [Suspect]
     Active Substance: DEXAMETHASONE
     Dosage: DOSAGEFORM NOT SPECIFIED, 20 MG, 1 EVERY 1 DAYS
     Route: 048
  27. DEXAMETHASONE [Suspect]
     Active Substance: DEXAMETHASONE
     Dosage: UNK
     Route: 048
  28. DEXAMETHASONE [Suspect]
     Active Substance: DEXAMETHASONE
     Dosage: 20 MG, 1 EVERY 1 DAYS
     Route: 048
  29. DEXAMETHASONE [Suspect]
     Active Substance: DEXAMETHASONE
     Dosage: 20 MG, 1 EVERY 1 DAYS
     Route: 048
  30. DEXAMETHASONE [Suspect]
     Active Substance: DEXAMETHASONE
     Dosage: 20 MG, 1 EVERY 1 DAYS
     Route: 048
  31. DEXAMETHASONE [Suspect]
     Active Substance: DEXAMETHASONE
     Dosage: 20 MG, 1 EVERY 1 DAYS
     Route: 048
  32. EMEND [Suspect]
     Active Substance: APREPITANT
     Indication: Supportive care
     Dosage: 125 MG
     Route: 048
  33. EMEND [Suspect]
     Active Substance: APREPITANT
     Dosage: 125 MG, 1 EVERY 1 DAYS
     Route: 048
  34. EMEND [Suspect]
     Active Substance: APREPITANT
     Dosage: 125 MG, 1 EVERY 1 DAYS
     Route: 048
  35. EMEND [Suspect]
     Active Substance: APREPITANT
     Dosage: 125 MG, 1 EVERY 1 DAYS
     Route: 048
  36. EMEND [Suspect]
     Active Substance: APREPITANT
     Dosage: 125 MG
     Route: 048
  37. EMEND [Suspect]
     Active Substance: APREPITANT
     Dosage: 125 MG, 1 EVERY 1 DAYS
     Route: 048
  38. EMEND [Suspect]
     Active Substance: APREPITANT
     Dosage: 125 MG, 1 EVERY 1 DAYS
     Route: 048
  39. EMEND [Suspect]
     Active Substance: APREPITANT
     Dosage: 125 MG, 1 EVERY 1 DAYS
     Route: 048
  40. EMEND [Suspect]
     Active Substance: APREPITANT
     Dosage: 80 MG, 1 EVERY 1 DAYS
     Route: 048
  41. EMEND [Suspect]
     Active Substance: APREPITANT
     Dosage: 80 MG, 1 EVERY 1 DAYS
     Route: 048
  42. EMEND [Suspect]
     Active Substance: APREPITANT
     Dosage: 80 MG, 1 EVERY 1 DAYS
     Route: 048
  43. EMEND [Suspect]
     Active Substance: APREPITANT
     Dosage: 80 MG, 1 EVERY 1 DAYS
     Route: 048
  44. EMEND [Suspect]
     Active Substance: APREPITANT
     Dosage: 80 MG, 1 EVERY 1 DAYS
     Route: 048
  45. EMEND [Suspect]
     Active Substance: APREPITANT
     Dosage: UNK
     Route: 048
  46. EMEND [Suspect]
     Active Substance: APREPITANT
     Dosage: 80 MG, 1 EVERY 1 DAYS
     Route: 048
  47. EMEND [Suspect]
     Active Substance: APREPITANT
     Dosage: 80 MG, 1 EVERY 1 DAYS
     Route: 048
  48. EMEND [Suspect]
     Active Substance: APREPITANT
     Dosage: 80 MG, 1 EVERY 1 DAYS
     Route: 048
  49. EMEND [Suspect]
     Active Substance: APREPITANT
     Dosage: 80 MG, 1 EVERY 1 DAYS
     Route: 048
  50. EMEND [Suspect]
     Active Substance: APREPITANT
     Dosage: UNK
     Route: 048
  51. EMEND [Suspect]
     Active Substance: APREPITANT
     Dosage: UNK
     Route: 048
  52. EMEND [Suspect]
     Active Substance: APREPITANT
     Dosage: UNK
     Route: 048
  53. ENOXAPARIN [Suspect]
     Active Substance: ENOXAPARIN
     Indication: Tardive dyskinesia
     Route: 058
  54. ENOXAPARIN [Suspect]
     Active Substance: ENOXAPARIN
     Dosage: 150 MG, 1 EVERY 1 DAYS,
     Route: 058
  55. ENOXAPARIN [Suspect]
     Active Substance: ENOXAPARIN
     Dosage: 150 MG, 1 EVERY 1 DAYS,
     Route: 058
  56. ENOXAPARIN [Suspect]
     Active Substance: ENOXAPARIN
     Dosage: 150 MG, 1 EVERY 1 DAYS
     Route: 058
  57. LEVOFLOXACIN [Suspect]
     Active Substance: LEVOFLOXACIN
     Indication: Tardive dyskinesia
     Dosage: DOSAGEFORM: NOT SPECIFIED, 500 MG, 1 EVERY 1 DAYS
     Route: 048
  58. LEVOFLOXACIN [Suspect]
     Active Substance: LEVOFLOXACIN
     Dosage: 500 MG, 1 EVERY 1 DAYS
     Route: 048
  59. LEVOFLOXACIN [Suspect]
     Active Substance: LEVOFLOXACIN
     Dosage: 500 MG
     Route: 048
  60. LEVOFLOXACIN [Suspect]
     Active Substance: LEVOFLOXACIN
     Dosage: 500 MG, 1 EVERY 1 DAYS
     Route: 048
  61. LEVOFLOXACIN [Suspect]
     Active Substance: LEVOFLOXACIN
     Dosage: UNK
     Route: 048
  62. LEVOFLOXACIN [Suspect]
     Active Substance: LEVOFLOXACIN
     Dosage: 500 ML
     Route: 048
  63. LORAZEPAM [Suspect]
     Active Substance: LORAZEPAM
     Indication: Tardive dyskinesia
     Dosage: DOSAGEFORM: NOT SPECIFIED, 0.5MG, 2 EVERY 1 DAYS
     Route: 048
  64. LORAZEPAM [Suspect]
     Active Substance: LORAZEPAM
     Indication: Tardive dyskinesia
     Dosage: 0.5MG, 1 EVERY 1 DAYS
     Route: 048
  65. LORAZEPAM [Suspect]
     Active Substance: LORAZEPAM
     Dosage: 0.5MG, 1 EVERY 12 HOURS
     Route: 048
  66. LORAZEPAM [Suspect]
     Active Substance: LORAZEPAM
     Dosage: 0.5MG, 2 EVERY 1 DAYS
     Route: 048
  67. LORAZEPAM [Suspect]
     Active Substance: LORAZEPAM
     Dosage: 0.5MG
     Route: 048
  68. METOCLOPRAMIDE [Suspect]
     Active Substance: METOCLOPRAMIDE
     Indication: Tardive dyskinesia
     Dosage: 10 MG, 4 EVERY 1 DAYS
     Route: 048
  69. METOCLOPRAMIDE [Suspect]
     Active Substance: METOCLOPRAMIDE
     Dosage: 10 MG, 1 EVERY 6 HOURS
     Route: 048
  70. METOCLOPRAMIDE [Suspect]
     Active Substance: METOCLOPRAMIDE
     Dosage: 10 MG, 4 EVERY 1 DAYS
     Route: 048
  71. METOCLOPRAMIDE [Suspect]
     Active Substance: METOCLOPRAMIDE
     Dosage: 10 MG, 1 EVERY 1 DAYS
     Route: 048
  72. NEULASTA [Suspect]
     Active Substance: PEGFILGRASTIM
     Indication: Supportive care
     Dosage: DOSAGEFORM: SOLUTION SUBCUTANEOUS, 6 MG, 1 EVERY 1 DAYS
     Route: 058
  73. NEULASTA [Suspect]
     Active Substance: PEGFILGRASTIM
     Dosage: 6 MG
     Route: 058
  74. NEULASTA [Suspect]
     Active Substance: PEGFILGRASTIM
     Dosage: 6 MG, 1 EVERY 1 DAYS
     Route: 058
  75. NEULASTA [Suspect]
     Active Substance: PEGFILGRASTIM
     Dosage: 6 MG
     Route: 058
  76. NEULASTA [Suspect]
     Active Substance: PEGFILGRASTIM
     Dosage: 6 MG
     Route: 058
  77. NEULASTA [Suspect]
     Active Substance: PEGFILGRASTIM
     Dosage: 6 MG
     Route: 058
  78. NEULASTA [Suspect]
     Active Substance: PEGFILGRASTIM
     Dosage: 6 MG
     Route: 058
  79. NEULASTA [Suspect]
     Active Substance: PEGFILGRASTIM
     Dosage: DOSAGE FORM: SOLUTION FOR INFUSION, 6 MG
     Route: 058
  80. NEUPOGEN [Suspect]
     Active Substance: FILGRASTIM
     Indication: Supportive care
     Dosage: 480 MICROGRAM, 1 EVERY 1 DAYS
     Route: 065
  81. NEUPOGEN [Suspect]
     Active Substance: FILGRASTIM
     Dosage: DOSAGEFORM: SOLUTION INTRAVENOUS, 480 MICROGRAM, 1 EVERY 1 DAYS
     Route: 042
  82. NEUPOGEN [Suspect]
     Active Substance: FILGRASTIM
     Dosage: 480 MICROGRAM, 1 EVERY 1 DAYS
     Route: 065
  83. NEUPOGEN [Suspect]
     Active Substance: FILGRASTIM
     Dosage: 480 MICROGRAM, 1 EVERY 1 DAYS
     Route: 048
  84. NEUPOGEN [Suspect]
     Active Substance: FILGRASTIM
     Dosage: 125 MICROGRAM, 1 EVERY 1 DAYS
     Route: 048
  85. NEUPOGEN [Suspect]
     Active Substance: FILGRASTIM
     Dosage: 480 MICROGRAM, 1 EVERY 1 DAYS
     Route: 065
  86. ONDANSETRON [Suspect]
     Active Substance: ONDANSETRON
     Indication: Supportive care
     Dosage: DOSAGEFORM: NOT SPECIFIED, 8 MG, 1 EVERY 1 DAYS
     Route: 048
  87. ONDANSETRON [Suspect]
     Active Substance: ONDANSETRON
     Dosage: DOSAGEFORM: ORODISPERSIBLE FILM, 8 MG
     Route: 048
  88. ONDANSETRON [Suspect]
     Active Substance: ONDANSETRON
     Dosage: DOSAGEFORM: ORODISPERSIBLE FILM, 8 MG
     Route: 048
  89. ONDANSETRON [Suspect]
     Active Substance: ONDANSETRON
     Dosage: DOSAGEFORM: ORODISPERSIBLE FILM
     Route: 065
  90. ONDANSETRON [Suspect]
     Active Substance: ONDANSETRON
     Dosage: DOSAGEFORM: ORODISPERSIBLE FILM
     Route: 048
  91. ONDANSETRON [Suspect]
     Active Substance: ONDANSETRON
     Dosage: DOSAGEFORM: ORODISPERSIBLE FILM, 8 MG
     Route: 048
  92. ONDANSETRON [Suspect]
     Active Substance: ONDANSETRON
     Dosage: DOSAGEFORM: ORODISPERSIBLE FILM, 8 MG
     Route: 048
  93. ONDANSETRON [Suspect]
     Active Substance: ONDANSETRON
     Dosage: DOSAGEFORM: ORODISPERSIBLE FILM, 8 MG
     Route: 048
  94. ONDANSETRON [Suspect]
     Active Substance: ONDANSETRON
     Dosage: DOSAGEFORM: ORODISPERSIBLE FILM, 8 MG, 1 EVERY 1 DAY
     Route: 048
  95. ONDANSETRON [Suspect]
     Active Substance: ONDANSETRON
     Dosage: DOSAGEFORM: ORODISPERSIBLE FILM, 8 MG
     Route: 048
  96. ONDANSETRON [Suspect]
     Active Substance: ONDANSETRON
     Dosage: DOSAGEFORM: ORODISPERSIBLE FILM, 8 MG
     Route: 048
  97. ONDANSETRON [Suspect]
     Active Substance: ONDANSETRON
     Dosage: DOSAGEFORM: ORODISPERSIBLE FILM, 8 MG
     Route: 048
  98. ONDANSETRON [Suspect]
     Active Substance: ONDANSETRON
     Dosage: DOSAGEFORM: ORODISPERSIBLE FILM, 8 MG
     Route: 048
  99. ONDANSETRON [Suspect]
     Active Substance: ONDANSETRON
     Dosage: 8 MG, 1 EVERY 1 DAYS
     Route: 048
  100. ONDANSETRON [Suspect]
     Active Substance: ONDANSETRON
     Dosage: 8 MG, 1 EVERY 1 DAYS
     Route: 048
  101. ONDANSETRON [Suspect]
     Active Substance: ONDANSETRON
     Dosage: 8 MG, DOSAGE FORM: NOT SPECIFIED
     Route: 048
  102. ONDANSETRON [Suspect]
     Active Substance: ONDANSETRON
     Dosage: 8 MG
     Route: 048
  103. PACLITAXEL [Suspect]
     Active Substance: PACLITAXEL
     Indication: Supportive care
     Dosage: 393 MG, 1 EVERY 1 DAY
     Route: 042
  104. PACLITAXEL [Suspect]
     Active Substance: PACLITAXEL
     Indication: Breast cancer
     Dosage: 393 MG, 1 EVERY 1 DAYS
     Route: 042
  105. PACLITAXEL [Suspect]
     Active Substance: PACLITAXEL
     Dosage: 303 MG
     Route: 042
  106. PACLITAXEL [Suspect]
     Active Substance: PACLITAXEL
     Dosage: 243 MG, 1 EVERY 1 DAYS
     Route: 042
  107. PACLITAXEL [Suspect]
     Active Substance: PACLITAXEL
     Dosage: 303 MG
     Route: 042
  108. PACLITAXEL [Suspect]
     Active Substance: PACLITAXEL
     Dosage: 303 MG
     Route: 042
  109. PACLITAXEL [Suspect]
     Active Substance: PACLITAXEL
     Dosage: 243 MG, DOSAGE FORM: LIQUID INTRAVENOUS
     Route: 042
  110. PACLITAXEL [Suspect]
     Active Substance: PACLITAXEL
     Dosage: 393 MG
     Route: 042
  111. PACLITAXEL [Suspect]
     Active Substance: PACLITAXEL
     Dosage: 303 MG, DOSAGE FORM: LIQUID INTRAVENOUS
     Route: 042
  112. RANITIDINE HYDROCHLORIDE [Suspect]
     Active Substance: RANITIDINE HYDROCHLORIDE
     Indication: Tardive dyskinesia
     Dosage: 150 MG, 1 EVERY 2 WEEKS
     Route: 048
  113. RANITIDINE HYDROCHLORIDE [Suspect]
     Active Substance: RANITIDINE HYDROCHLORIDE
     Dosage: 150 MG, 2 EVERY 1 DAYS
     Route: 048
  114. RANITIDINE HYDROCHLORIDE [Suspect]
     Active Substance: RANITIDINE HYDROCHLORIDE
     Dosage: 150 MG
     Route: 048
  115. RANITIDINE HYDROCHLORIDE [Suspect]
     Active Substance: RANITIDINE HYDROCHLORIDE
     Dosage: 150 MG, 1 EVERY 12 HOURS
     Route: 048
  116. RANITIDINE HYDROCHLORIDE [Suspect]
     Active Substance: RANITIDINE HYDROCHLORIDE
     Dosage: UNK
     Route: 048
  117. RANITIDINE HYDROCHLORIDE [Suspect]
     Active Substance: RANITIDINE HYDROCHLORIDE
     Dosage: 150 MG, 2 EVERY 1 DAYS
     Route: 048
  118. RANITIDINE HYDROCHLORIDE [Suspect]
     Active Substance: RANITIDINE HYDROCHLORIDE
     Dosage: 150 MG
     Route: 048
  119. TRASTUZUMAB [Suspect]
     Active Substance: TRASTUZUMAB
     Indication: Tardive dyskinesia
     Dosage: 866 MG, 1 EVERY 1 DAYS
     Route: 065
  120. TRASTUZUMAB [Suspect]
     Active Substance: TRASTUZUMAB
     Dosage: 866 MG,  EVERY 1 DAYS
     Route: 065
  121. TRASTUZUMAB [Suspect]
     Active Substance: TRASTUZUMAB
     Dosage: 866 MG, 1 EVERY 1 DAYS
     Route: 065
  122. TRASTUZUMAB [Suspect]
     Active Substance: TRASTUZUMAB
     Dosage: 626 MG
     Route: 065
  123. TRASTUZUMAB [Suspect]
     Active Substance: TRASTUZUMAB
     Dosage: UNK
     Route: 048
  124. TRASTUZUMAB [Suspect]
     Active Substance: TRASTUZUMAB
     Dosage: 626 MG
     Route: 065
  125. TRASTUZUMAB [Suspect]
     Active Substance: TRASTUZUMAB
     Dosage: UNK
     Route: 065
  126. TRASTUZUMAB [Suspect]
     Active Substance: TRASTUZUMAB
     Dosage: UNK
     Route: 065
  127. TRASTUZUMAB [Suspect]
     Active Substance: TRASTUZUMAB
     Dosage: 626 MG, 1 EVERY 1 DAY
     Route: 065
  128. TRASTUZUMAB [Suspect]
     Active Substance: TRASTUZUMAB
     Dosage: 626 MG
     Route: 065
  129. TRASTUZUMAB [Suspect]
     Active Substance: TRASTUZUMAB
     Dosage: 626 MG
     Route: 065
  130. TRASTUZUMAB [Suspect]
     Active Substance: TRASTUZUMAB
     Dosage: 866 MG
     Route: 065
  131. TRASTUZUMAB [Suspect]
     Active Substance: TRASTUZUMAB
     Dosage: 626 MG, 1 EVERY 1 DAY
     Route: 065
  132. APREPITANT [Suspect]
     Active Substance: APREPITANT
     Indication: Supportive care
     Dosage: 125.0 MG, 1 EVERY 1 DAY
     Route: 048
  133. APREPITANT [Suspect]
     Active Substance: APREPITANT
     Dosage: 80.0 MG, 1 EVERY 1 DAY
     Route: 048
  134. APREPITANT [Suspect]
     Active Substance: APREPITANT
     Dosage: 125 MG,
     Route: 048
  135. APREPITANT [Suspect]
     Active Substance: APREPITANT
     Dosage: 125 MG,
     Route: 048
  136. APREPITANT [Suspect]
     Active Substance: APREPITANT
     Dosage: 80.0 MG, 1 EVERY 1 DAY
     Route: 048

REACTIONS (12)
  - Atelectasis [Recovered/Resolved]
  - Computerised tomogram thorax [Recovered/Resolved]
  - Computerised tomogram thorax abnormal [Recovered/Resolved]
  - Gastrointestinal disorder [Recovered/Resolved]
  - Off label use [Recovered/Resolved]
  - Cough [Recovered/Resolved]
  - Dyspnoea [Recovered/Resolved]
  - Fatigue [Recovered/Resolved]
  - Hypoxia [Recovered/Resolved]
  - Nausea [Recovered/Resolved]
  - Pyrexia [Recovered/Resolved]
  - Rash [Recovered/Resolved]
